FAERS Safety Report 4865586-1 (Version None)
Quarter: 2005Q4

REPORT INFORMATION
  Report Type: 
  Country: None (occurrence: None)
  Receive Date: 20051220
  Receipt Date: 20051130
  Transmission Date: 20060501
  Serious: Yes (Death)
  Sender: FDA-Public Use
  Company Number: BR200512000304

PATIENT
  Sex: Female

DRUGS (2)
  1. FORTEO [Suspect]
     Dosage: 20 UG DAILY (1/D) SUBCUTANEOUS
     Route: 058
  2. FORTEO PEN (FORTEO PEN) [Concomitant]

REACTIONS (1)
  - DEATH [None]
